FAERS Safety Report 5076817-X (Version None)
Quarter: 2006Q3

REPORT INFORMATION
  Report Type: 
  Country: None (occurrence: None)
  Receive Date: 20060725
  Receipt Date: 20060516
  Transmission Date: 20061208
  Serious: No
  Sender: FDA-Public Use
  Company Number: 200613286BWH

PATIENT
  Age: 63 Year
  Sex: Female

DRUGS (2)
  1. NEXAVAR [Suspect]
     Indication: RENAL CELL CARCINOMA STAGE UNSPECIFIED
     Dosage: 400 MG, BID, ORAL
     Route: 048
     Dates: start: 20060201, end: 20060210
  2. INTERFERON [Concomitant]

REACTIONS (3)
  - ALOPECIA [None]
  - PYREXIA [None]
  - URTICARIA [None]
